FAERS Safety Report 4544473-2 (Version None)
Quarter: 2004Q4

REPORT INFORMATION
  Report Type: 
  Country: None (occurrence: None)
  Receive Date: 20041230
  Receipt Date: 20041215
  Transmission Date: 20050328
  Serious: Yes (Other)
  Sender: FDA-Public Use
  Company Number: DSA_25503_2004

PATIENT
  Age: 56 Year
  Sex: Female
  Weight: 77.1115 kg

DRUGS (4)
  1. CARDIZEM CD [Suspect]
     Indication: ESSENTIAL HYPERTENSION
     Dosage: 180 MG Q DAY PO
     Route: 048
     Dates: start: 19940101, end: 20041206
  2. DILTIAZEM [Suspect]
     Dosage: 240 MG Q DAY PO
     Route: 048
     Dates: start: 20041206
  3. LOTENSIN [Suspect]
     Indication: BLOOD PRESSURE
     Dosage: 40 MG Q DAY PO
     Route: 048
     Dates: end: 20041206
  4. HYDROCHLOROTHIAZIDE [Concomitant]

REACTIONS (5)
  - CONSTIPATION [None]
  - HYPERTENSION [None]
  - PHARMACEUTICAL PRODUCT COMPLAINT [None]
  - SKIN DISORDER [None]
  - URTICARIA [None]
